FAERS Safety Report 7818339-6 (Version None)
Quarter: 2011Q4

REPORT INFORMATION
  Report Type: 
  Country: None (occurrence: None)
  Receive Date: 20111017
  Receipt Date: 20111011
  Transmission Date: 20120403
  Serious: Yes (Hospitalization, Other)
  Sender: FDA-Public Use
  Company Number: DZ-ROCHE-803825

PATIENT
  Age: 46 Year
  Sex: Female
  Weight: 80 kg

DRUGS (3)
  1. CARBOPLATIN [Concomitant]
     Indication: OVARIAN CANCER
     Dates: start: 20110906
  2. PACLITAXEL [Concomitant]
     Indication: OVARIAN CANCER
     Dates: start: 20110906
  3. AVASTIN [Suspect]
     Indication: OVARIAN CANCER METASTATIC
     Dosage: FREQUENCY:  PER CURE
     Route: 042
     Dates: start: 20110906, end: 20110901

REACTIONS (6)
  - RECTAL SPASM [None]
  - PROCTALGIA [None]
  - RECTAL TENESMUS [None]
  - RECTAL HAEMORRHAGE [None]
  - ANORECTAL DISCOMFORT [None]
  - OFF LABEL USE [None]
